FAERS Safety Report 18265431 (Version 1)
Quarter: 2020Q3

REPORT INFORMATION
  Report Type: Spontaneous
  Country: US (occurrence: US)
  Receive Date: 20200915
  Receipt Date: 20200915
  Transmission Date: 20201103
  Serious: Yes (Other)
  Sender: FDA-Public Use
  Company Number: US-BEH-2020122303

PATIENT
  Sex: Female

DRUGS (1)
  1. HIZENTRA [Suspect]
     Active Substance: HUMAN IMMUNOGLOBULIN G
     Indication: IMMUNODEFICIENCY COMMON VARIABLE
     Dosage: 34 GRAM, QOW
     Route: 058
     Dates: start: 202006

REACTIONS (5)
  - Pruritus [Unknown]
  - Chronic lymphocytic leukaemia [Unknown]
  - Joint swelling [Unknown]
  - Headache [Unknown]
  - Peripheral swelling [Unknown]
